FAERS Safety Report 9822494 (Version 2)
Quarter: 2014Q1

REPORT INFORMATION
  Report Type: Spontaneous
  Country: US (occurrence: US)
  Receive Date: 20140116
  Receipt Date: 20140116
  Transmission Date: 20141002
  Serious: No
  Sender: FDA-Public Use
  Company Number: US-ORAPHARMA-QUINORA-2012-052

PATIENT
  Sex: 0

DRUGS (1)
  1. ARESTIN [Suspect]
     Indication: TOOTH DISORDER
     Dosage: 1 DF, ONE TIME DOSE
     Route: 050
     Dates: start: 20121024

REACTIONS (1)
  - Product used for unknown indication [Unknown]
